FAERS Safety Report 10713072 (Version 3)
Quarter: 2015Q1

REPORT INFORMATION
  Report Type: Report from Study
  Country: JP (occurrence: JP)
  Receive Date: 20150115
  Receipt Date: 20150119
  Transmission Date: 20150721
  Serious: Yes (Hospitalization)
  Sender: FDA-Public Use
  Company Number: JP-EISAI MEDICAL RESEARCH-EC-2015-002957

PATIENT
  Age: 79 Year
  Sex: Female
  Weight: 52 kg

DRUGS (29)
  1. PREDNISOLONE. [Suspect]
     Active Substance: PREDNISOLONE
     Indication: DERMATITIS
     Route: 048
     Dates: start: 20141107
  2. ATENOLOL. [Concomitant]
     Active Substance: ATENOLOL
  3. MECOBALAMIN [Concomitant]
     Active Substance: METHYLCOBALAMIN
  4. COLCHICINE. [Concomitant]
     Active Substance: COLCHICINE
  5. POLYCARBOPHIL CALCIUM [Concomitant]
     Active Substance: CALCIUM POLYCARBOPHIL
  6. OXYBUPROCAINE HYDROCHLORIDE [Concomitant]
  7. NIFEDIPINE. [Concomitant]
     Active Substance: NIFEDIPINE
  8. LEVOFLOXACIN HEMIHYDRATE [Concomitant]
     Active Substance: LEVOFLOXACIN
  9. RABEPRAZOLE [Suspect]
     Active Substance: RABEPRAZOLE
     Dosage: DOUBLE-BLIND MAINTENANCE
     Route: 048
     Dates: start: 20131220, end: 20141218
  10. PREDNISOLONE. [Suspect]
     Active Substance: PREDNISOLONE
     Indication: BEHCET^S SYNDROME
  11. EPERISONE HYDROCHLORIDE [Concomitant]
     Active Substance: EPERISONE HYDROCHLORIDE
  12. CHOREITO [Concomitant]
  13. RABEPRAZOLE [Suspect]
     Active Substance: RABEPRAZOLE
     Indication: GASTROOESOPHAGEAL REFLUX DISEASE
     Route: 048
     Dates: start: 20131023, end: 20131219
  14. TRAMADOL HYDROCHLORIDE AND ACETAMINOPHEN [Concomitant]
     Active Substance: ACETAMINOPHEN\TRAMADOL HYDROCHLORIDE
  15. FLUOROMETHOLONE. [Concomitant]
     Active Substance: FLUOROMETHOLONE
  16. MAGNESIUM OXIDE. [Concomitant]
     Active Substance: MAGNESIUM OXIDE
  17. ZOLPIDEM TARTRATE. [Concomitant]
     Active Substance: ZOLPIDEM TARTRATE
  18. EPLERENONE. [Concomitant]
     Active Substance: EPLERENONE
  19. NIFEDIPINE. [Concomitant]
     Active Substance: NIFEDIPINE
  20. FUROSEMIDE. [Concomitant]
     Active Substance: FUROSEMIDE
  21. ACARBOSE. [Concomitant]
     Active Substance: ACARBOSE
  22. KETOPROFEN. [Concomitant]
     Active Substance: KETOPROFEN
  23. KALLIDINOGENASE [Concomitant]
     Active Substance: KALLIDINOGENASE
  24. LOXOPROFEN SODIUM HYDRATE [Concomitant]
     Active Substance: LOXOPROFEN SODIUM DIHYDRATE
  25. ACETAMINOPHEN. [Concomitant]
     Active Substance: ACETAMINOPHEN
  26. ELDECALCITOL [Concomitant]
     Active Substance: ELDECALCITOL
  27. TOFISOPAM [Concomitant]
     Active Substance: TOFISOPAM
  28. OLMESARTAN MEDOXOMIL. [Concomitant]
     Active Substance: OLMESARTAN MEDOXOMIL
  29. IMIDAFENACIN [Concomitant]
     Active Substance: IMIDAFENACIN

REACTIONS (1)
  - Sepsis [Not Recovered/Not Resolved]

NARRATIVE: CASE EVENT DATE: 20141220
